FAERS Safety Report 6709331-3 (Version None)
Quarter: 2010Q2

REPORT INFORMATION
  Report Type: 
  Country: None (occurrence: None)
  Receive Date: 20100504
  Receipt Date: 20100428
  Transmission Date: 20101027
  Serious: Yes (Hospitalization)
  Sender: FDA-Public Use
  Company Number: US-SHIRE-SPV1-2010-00812

PATIENT

DRUGS (1)
  1. PENTASA [Suspect]
     Indication: COLITIS ULCERATIVE
     Dosage: 1000 MG, 4X/DAY:QID VIA PEG TUBE
     Dates: start: 20070913

REACTIONS (3)
  - CEREBROVASCULAR ACCIDENT [None]
  - DEVICE OCCLUSION [None]
  - FEEDING TUBE COMPLICATION [None]
